FAERS Safety Report 16770843 (Version 3)
Quarter: 2020Q3

REPORT INFORMATION
  Report Type: Other
  Country: CO (occurrence: CO)
  Receive Date: 20190904
  Receipt Date: 20200728
  Transmission Date: 20201102
  Serious: Yes (Hospitalization, Other)
  Sender: FDA-Public Use
  Company Number: CO-ROCHE-2398197

PATIENT
  Age: 11 Year
  Sex: Male
  Weight: 31 kg

DRUGS (7)
  1. XOLAIR [Suspect]
     Active Substance: OMALIZUMAB
     Route: 058
     Dates: start: 20190608, end: 20190608
  2. XOLAIR [Suspect]
     Active Substance: OMALIZUMAB
     Route: 058
     Dates: start: 201901, end: 201901
  3. XOLAIR [Suspect]
     Active Substance: OMALIZUMAB
     Indication: ASTHMA
     Route: 058
     Dates: start: 20180119
  4. XOLAIR [Suspect]
     Active Substance: OMALIZUMAB
     Dosage: UNK
     Route: 058
     Dates: start: 20180717
  5. FLUTICASONE. [Concomitant]
     Active Substance: FLUTICASONE
     Indication: ASTHMA
     Route: 045
  6. SALBUTAMOL [Suspect]
     Active Substance: ALBUTEROL
     Indication: ASTHMA
     Dosage: UNK
     Route: 065
  7. LORATADINE. [Concomitant]
     Active Substance: LORATADINE
     Indication: ASTHMA
     Route: 065

REACTIONS (13)
  - Mite allergy [Unknown]
  - Urticaria [Unknown]
  - Allergy to chemicals [Not Recovered/Not Resolved]
  - Rash [Recovered/Resolved]
  - Cyanosis [Recovered/Resolved]
  - Mycotic allergy [Unknown]
  - Allergy to animal [Not Recovered/Not Resolved]
  - Dyspnoea [Recovered/Resolved]
  - Sleep apnoea syndrome [Unknown]
  - Food allergy [Not Recovered/Not Resolved]
  - Inflammation [Recovered/Resolved]
  - Obstructive airways disorder [Recovered/Resolved]
  - Asthmatic crisis [Not Recovered/Not Resolved]

NARRATIVE: CASE EVENT DATE: 20180709
